FAERS Safety Report 9174937 (Version 18)
Quarter: 2015Q1

REPORT INFORMATION
  Report Type: Spontaneous
  Country: US (occurrence: US)
  Receive Date: 20130320
  Receipt Date: 20150115
  Transmission Date: 20150721
  Serious: Yes (Hospitalization, Other)
  Sender: FDA-Public Use
  Company Number: US-GLAXOSMITHKLINE-A0973687A

PATIENT
  Age: 31 Year
  Sex: Female

DRUGS (14)
  1. FLOLAN [Suspect]
     Active Substance: EPOPROSTENOL SODIUM
     Dosage: UNK
     Dates: start: 20100104
  2. FLOLAN [Suspect]
     Active Substance: EPOPROSTENOL SODIUM
     Dosage: UNK
     Dates: start: 20100104
  3. FLOLAN [Suspect]
     Active Substance: EPOPROSTENOL SODIUM
     Dosage: 49 NG/KG/MIN CONTINUOUSLY
     Dates: start: 20100208
  4. COUMADIN [Concomitant]
     Active Substance: WARFARIN SODIUM
  5. WARFARIN [Concomitant]
     Active Substance: WARFARIN
  6. FLOLAN [Suspect]
     Active Substance: EPOPROSTENOL SODIUM
     Dosage: UNK
     Dates: start: 20100104
  7. FLOLAN [Suspect]
     Active Substance: EPOPROSTENOL SODIUM
     Dosage: 48.5 NG/KG/MIN CONTINUOUS
     Dates: start: 20100104
  8. FLOLAN [Suspect]
     Active Substance: EPOPROSTENOL SODIUM
     Dosage: UNK
     Dates: start: 20100104
  9. FLOLAN [Suspect]
     Active Substance: EPOPROSTENOL SODIUM
     Dosage: 48.5 NG/KG/MIN CO, 75,000 NG/ML
  10. ORENITRAM [Concomitant]
     Active Substance: TREPROSTINIL
  11. FLOLAN [Suspect]
     Active Substance: EPOPROSTENOL SODIUM
     Dosage: 48.5 NG/KG/MIN CONTINUOUSLY;1.5 MG VIAL STRENGTH; 75,000 NG/ML CONCENTRATION; 78 ML/DAY PUMP RATE
     Route: 042
     Dates: start: 20100106
  12. FLOLAN [Suspect]
     Active Substance: EPOPROSTENOL SODIUM
     Dosage: 49 NG/KG/MIN CONTINUOUSLY, 75,000 NG/ML, PUMP RATE: 79 ML/DAY, VIAL STRENGTH: 1.5 MG
     Dates: start: 20100113
  13. FLOLAN [Suspect]
     Active Substance: EPOPROSTENOL SODIUM
     Indication: PULMONARY ARTERIAL HYPERTENSION
     Dosage: 33 NG/KG/MIN CONTINUOUSLY1.5 MG VIAL STRENGTH, 30,000 NG/ML CONCENTRATION47NG/KG/MIN CONTINUOUS[...]
     Route: 042
     Dates: start: 20100104
  14. REVATIO [Concomitant]
     Active Substance: SILDENAFIL CITRATE

REACTIONS (18)
  - Diarrhoea [Not Recovered/Not Resolved]
  - Renal disorder [Unknown]
  - Lethargy [Recovering/Resolving]
  - Back pain [Recovering/Resolving]
  - Headache [Recovering/Resolving]
  - Staphylococcal infection [Unknown]
  - Right ventricular failure [Not Recovered/Not Resolved]
  - Central venous catheterisation [Unknown]
  - Device dislocation [Recovered/Resolved]
  - Swelling face [Unknown]
  - Device related infection [Unknown]
  - Device related sepsis [Unknown]
  - Lung disorder [Unknown]
  - Pulmonary hypertension [Recovered/Resolved]
  - Hospitalisation [Unknown]
  - Device breakage [Recovered/Resolved]
  - Rash generalised [Unknown]
  - Catheter placement [Unknown]

NARRATIVE: CASE EVENT DATE: 20120404
